FAERS Safety Report 21975157 (Version 1)
Quarter: 2023Q1

REPORT INFORMATION
  Report Type: Report from Study
  Country: US (occurrence: US)
  Receive Date: 20230209
  Receipt Date: 20230209
  Transmission Date: 20230418
  Serious: Yes (Hospitalization)
  Sender: FDA-Public Use
  Company Number: US-ACADIA PHARMACEUTICALS INC.-ACA-2023-PIM-000432

PATIENT
  Sex: Male

DRUGS (11)
  1. NUPLAZID [Suspect]
     Active Substance: PIMAVANSERIN TARTRATE
     Indication: Parkinson^s disease
     Dosage: 34 MILLIGRAM, QD
     Route: 048
  2. QUETIAPINE [Concomitant]
     Active Substance: QUETIAPINE
  3. FINASTERIDE [Concomitant]
     Active Substance: FINASTERIDE
  4. DONEPEZIL [Concomitant]
     Active Substance: DONEPEZIL
  5. ENTACAPONE [Concomitant]
     Active Substance: ENTACAPONE
  6. ATORVASTATIN [Concomitant]
     Active Substance: ATORVASTATIN
  7. ESCITALOPRAM [Concomitant]
     Active Substance: ESCITALOPRAM OXALATE
  8. RASAGILINE [Concomitant]
     Active Substance: RASAGILINE
  9. CARBIDOPA [Concomitant]
     Active Substance: CARBIDOPA
  10. VITAMINS [Concomitant]
     Active Substance: VITAMINS
  11. METOPROLOL [Concomitant]
     Active Substance: METOPROLOL

REACTIONS (1)
  - Dementia [Unknown]
